FAERS Safety Report 18227571 (Version 1)
Quarter: 2020Q3

REPORT INFORMATION
  Report Type: Spontaneous
  Country: CO (occurrence: CO)
  Receive Date: 20200903
  Receipt Date: 20200903
  Transmission Date: 20201103
  Serious: Yes (Death, Hospitalization)
  Sender: FDA-Public Use
  Company Number: CO-MYLANLABS-2020M1076695

PATIENT
  Age: 13 Year
  Sex: Female
  Weight: 12 kg

DRUGS (1)
  1. CYSTAGON [Suspect]
     Active Substance: CYSTEAMINE BITARTRATE
     Indication: CYSTINOSIS
     Dosage: 900 MILLIGRAM, QD, DIVIDED IN 4 DOSES EVERY 6 HOURS
     Route: 048
     Dates: start: 20200203

REACTIONS (3)
  - Cardio-respiratory arrest [Fatal]
  - Abdominal pain [Fatal]
  - Pulmonary oedema [Fatal]

NARRATIVE: CASE EVENT DATE: 20200815
